FAERS Safety Report 20814963 (Version 1)
Quarter: 2022Q2

REPORT INFORMATION
  Report Type: Spontaneous
  Country: US (occurrence: US)
  Receive Date: 20220511
  Receipt Date: 20220511
  Transmission Date: 20220721
  Serious: No
  Sender: FDA-Public Use
  Company Number: US-PFIZER INC-202200584886

PATIENT
  Age: 56 Year
  Sex: Female

DRUGS (1)
  1. SIROLIMUS [Suspect]
     Active Substance: SIROLIMUS
     Dosage: 1 MG, DAILY

REACTIONS (3)
  - Drug hypersensitivity [Unknown]
  - Rash [Unknown]
  - Nausea [Unknown]
